FAERS Safety Report 9100007 (Version 3)
Quarter: 2013Q2

REPORT INFORMATION
  Report Type: Spontaneous
  Country: US (occurrence: US)
  Receive Date: 20130215
  Receipt Date: 20130503
  Transmission Date: 20140414
  Serious: Yes (Hospitalization)
  Sender: FDA-Public Use
  Company Number: US-ELI_LILLY_AND_COMPANY-US201302002979

PATIENT
  Age: 61 Year
  Sex: Female
  Weight: 62.59 kg

DRUGS (9)
  1. FORTEO [Suspect]
     Indication: OSTEOPOROSIS
     Dosage: 20 UG, QD
     Route: 058
     Dates: start: 20120717, end: 20121220
  2. FORTEO [Suspect]
     Dosage: 20 UG, QD
     Route: 058
     Dates: start: 20121223
  3. LEVOTHYROXINE [Concomitant]
  4. ZOLPIDEM [Concomitant]
  5. CYMBALTA [Concomitant]
  6. GABAPENTIN [Concomitant]
  7. PREVACID [Concomitant]
  8. VITAMIN D3 [Concomitant]
     Indication: VITAMIN SUPPLEMENTATION
     Dosage: 2000 IU, QD
  9. DOMPERIDONE [Concomitant]

REACTIONS (4)
  - Hyponatraemia [Recovered/Resolved]
  - Fatigue [Unknown]
  - Gastroenteritis [Recovered/Resolved]
  - Asthenia [Unknown]
